FAERS Safety Report 13968610 (Version 2)
Quarter: 2017Q4

REPORT INFORMATION
  Report Type: Spontaneous
  Country: JP (occurrence: JP)
  Receive Date: 20170914
  Receipt Date: 20171012
  Transmission Date: 20180320
  Serious: Yes (Other)
  Sender: FDA-Public Use
  Company Number: JP-JNJFOC-20170912083

PATIENT
  Sex: Female

DRUGS (1)
  1. SOVRIAD [Suspect]
     Active Substance: SIMEPREVIR
     Indication: HEPATITIS C
     Route: 048

REACTIONS (4)
  - Hepatic atrophy [Unknown]
  - Hepatic function abnormal [Unknown]
  - Off label use [Unknown]
  - Product use issue [Unknown]
